FAERS Safety Report 8972264 (Version 3)
Quarter: 2014Q2

REPORT INFORMATION
  Report Type: Report from Study
  Country: US (occurrence: US)
  Receive Date: 20121218
  Receipt Date: 20140424
  Transmission Date: 20141212
  Serious: Yes (Congenital Anomaly, Other)
  Sender: FDA-Public Use
  Company Number: US-ROCHE-CID000000002257899

PATIENT
  Sex: 0

DRUGS (1)
  1. OMALIZUMAB [Suspect]
     Indication: ASTHMA
     Dosage: DATE OF LAST DOSE PRIOR TO EVENT: 31/OCT/2012
     Route: 064
     Dates: start: 20110820

REACTIONS (2)
  - Foetal disorder [Unknown]
  - Maternal exposure timing unspecified [Unknown]
